FAERS Safety Report 13207837 (Version 1)
Quarter: 2017Q1

REPORT INFORMATION
  Report Type: Spontaneous
  Country: US (occurrence: US)
  Receive Date: 20170209
  Receipt Date: 20170209
  Transmission Date: 20170428
  Serious: Yes (Other)
  Sender: FDA-Public Use
  Company Number: US-ARBOR PHARMACEUTICALS, LLC-US-2017ARB000189

PATIENT

DRUGS (1)
  1. ERYTHROMYCIN. [Suspect]
     Active Substance: ERYTHROMYCIN
     Indication: PRODUCT USED FOR UNKNOWN INDICATION
     Dosage: UNK, TID

REACTIONS (8)
  - Social avoidant behaviour [Unknown]
  - Cognitive disorder [Unknown]
  - Obsessive-compulsive personality disorder [Unknown]
  - Depression [Unknown]
  - Fatigue [Unknown]
  - Irritability [Unknown]
  - Movement disorder [Unknown]
  - Headache [Unknown]
